FAERS Safety Report 13662174 (Version 1)
Quarter: 2017Q2

REPORT INFORMATION
  Report Type: Report from Study
  Country: None (occurrence: AR)
  Receive Date: 20170616
  Receipt Date: 20170616
  Transmission Date: 20170830
  Serious: Yes (Death, Hospitalization)
  Sender: FDA-Public Use
  Company Number: AR-ABBVIE-17P-007-2009873-00

PATIENT
  Age: 66 Year
  Sex: Female

DRUGS (1)
  1. ZEMPLAR [Suspect]
     Active Substance: PARICALCITOL
     Indication: HYPERPARATHYROIDISM SECONDARY
     Route: 048
     Dates: start: 20150615

REACTIONS (3)
  - Arteriovenous fistula site infection [Fatal]
  - General physical health deterioration [Fatal]
  - Arteriovenous fistula site complication [Fatal]

NARRATIVE: CASE EVENT DATE: 20170526
